FAERS Safety Report 5125152-X (Version None)
Quarter: 2006Q4

REPORT INFORMATION
  Report Type: 
  Country: None (occurrence: None)
  Receive Date: 20061011
  Receipt Date: 20051115
  Transmission Date: 20070319
  Serious: Yes (Death, Hospitalization)
  Sender: FDA-Public Use
  Company Number: IT-SANOFI-SYNTHELABO-A06200500266

PATIENT
  Age: 74 Year
  Sex: Male

DRUGS (4)
  1. ELOXATIN [Suspect]
     Indication: RECTAL CANCER STAGE III
     Route: 041
     Dates: start: 20051003, end: 20051003
  2. LEUCOVORINE [Concomitant]
     Indication: RECTAL CANCER STAGE III
     Route: 041
     Dates: start: 20051003, end: 20051003
  3. FLUOROURACIL [Concomitant]
     Indication: RECTAL CANCER STAGE III
     Route: 040
     Dates: end: 20051003
  4. FLUOROURACIL [Concomitant]
     Route: 041
     Dates: end: 20051003

REACTIONS (8)
  - ACUTE RESPIRATORY DISTRESS SYNDROME [None]
  - CARDIAC FAILURE [None]
  - COUGH [None]
  - DYSPNOEA [None]
  - INTERSTITIAL LUNG DISEASE [None]
  - NEUTROPENIA [None]
  - RENAL FAILURE [None]
  - THROMBOCYTOPENIA [None]
